FAERS Safety Report 6831276-9 (Version None)
Quarter: 2010Q3

REPORT INFORMATION
  Report Type: 
  Country: None (occurrence: None)
  Receive Date: 20100712
  Receipt Date: 20100702
  Transmission Date: 20110219
  Serious: Yes (Hospitalization, Other)
  Sender: FDA-Public Use
  Company Number: AU-PFIZER INC-2010083600

PATIENT
  Age: 75 Year
  Sex: Female

DRUGS (13)
  1. CELEBREX [Suspect]
  2. AROMASIN [Suspect]
     Dosage: UNK
  3. ERYTHROMYCIN [Suspect]
  4. TAMOXIFEN CITRATE [Suspect]
  5. PENICILLIN NOS [Suspect]
  6. PSEUDOEPHEDRINE [Suspect]
  7. PETHIDINE [Suspect]
  8. CODEINE [Suspect]
  9. DIAZEPAM [Suspect]
  10. INDAPAMIDE [Suspect]
  11. METHYLDOPA [Suspect]
  12. LETROZOLE [Suspect]
  13. TRASTUZUMAB [Suspect]

REACTIONS (18)
  - ABDOMINAL DISCOMFORT [None]
  - ABDOMINAL PAIN [None]
  - ASTHMA [None]
  - BREAST CANCER STAGE III [None]
  - COUGH [None]
  - DIARRHOEA [None]
  - DRUG INTOLERANCE [None]
  - FALL [None]
  - FATIGUE [None]
  - FLUSHING [None]
  - HALLUCINATION [None]
  - HYPONATRAEMIA [None]
  - JOINT SWELLING [None]
  - LIVER FUNCTION TEST ABNORMAL [None]
  - OEDEMA PERIPHERAL [None]
  - PYREXIA [None]
  - RASH [None]
  - VOMITING [None]
